FAERS Safety Report 8110234-0 (Version None)
Quarter: 2012Q1

REPORT INFORMATION
  Report Type: 
  Country: None (occurrence: None)
  Receive Date: 20120202
  Receipt Date: 20120127
  Transmission Date: 20120608
  Serious: No
  Sender: FDA-Public Use
  Company Number: US-AMGEN-USASP2011024580

PATIENT
  Age: 59 Year
  Sex: Female

DRUGS (4)
  1. METHOTREXATE [Concomitant]
     Dosage: 2.5 MG, QWK
     Dates: start: 20110921
  2. NABUMETONE [Concomitant]
  3. ENBREL [Suspect]
     Indication: PSORIASIS
     Dosage: 50 MG, QWK
     Route: 058
     Dates: start: 20040818, end: 20120125
  4. ENBREL [Suspect]
     Dosage: 50 MG, QWK
     Dates: start: 20040820, end: 20110914

REACTIONS (2)
  - PSORIASIS [None]
  - MENIERE'S DISEASE [None]
